FAERS Safety Report 8775950 (Version 1)
Quarter: 2012Q4

REPORT INFORMATION
  Report Type: 
  Country: DE (occurrence: DE)
  Receive Date: 20120910
  Receipt Date: 20120910
  Transmission Date: 20130627
  Serious: Yes (Other)
  Sender: FDA-Public Use
  Company Number: DE-ASTRAZENECA-2012SE65861

PATIENT
  Sex: Female

DRUGS (3)
  1. ATACAND [Suspect]
     Route: 048
     Dates: start: 201106
  2. EBRANTIL [Concomitant]
  3. BISOPROLOL [Concomitant]

REACTIONS (8)
  - Loss of consciousness [Unknown]
  - Oral mucosal discolouration [Not Recovered/Not Resolved]
  - Saliva discolouration [Not Recovered/Not Resolved]
  - Eye colour change [Not Recovered/Not Resolved]
  - Visual impairment [Unknown]
  - Glossodynia [Unknown]
  - Mucosal discolouration [Not Recovered/Not Resolved]
  - Dizziness [Unknown]
